FAERS Safety Report 5567370-2 (Version None)
Quarter: 2007Q4

REPORT INFORMATION
  Report Type: 
  Country: None (occurrence: None)
  Receive Date: 20071214
  Receipt Date: 20071207
  Transmission Date: 20080405
  Serious: Yes (Other)
  Sender: FDA-Public Use
  Company Number: 17984

PATIENT
  Age: 37 Year
  Sex: Male

DRUGS (8)
  1. CYTARABINE [Suspect]
     Indication: NON-HODGKIN'S LYMPHOMA
     Dosage: 40 MG IT
     Route: 037
  2. CYTARABINE [Suspect]
     Indication: NON-HODGKIN'S LYMPHOMA
     Dosage: 12 G IV
     Route: 042
  3. METHOTREXATE [Suspect]
     Indication: NON-HODGKIN'S LYMPHOMA
     Dosage: 15 MG IT
     Route: 037
  4. METHOTREXATE [Suspect]
     Indication: NON-HODGKIN'S LYMPHOMA
     Dosage: 1 G IV
     Route: 042
  5. DEXAMETHASONE TAB [Suspect]
     Indication: NON-HODGKIN'S LYMPHOMA
     Dosage: 4 MG
  6. ACYCLOVIR [Concomitant]
  7. FLUCONAZOLE [Concomitant]
  8. FOLINIC ACID [Concomitant]

REACTIONS (7)
  - BONE MARROW FAILURE [None]
  - DIARRHOEA [None]
  - FEBRILE NEUTROPENIA [None]
  - MUCOSAL INFLAMMATION [None]
  - NEUTROPENIA [None]
  - STEM CELL TRANSPLANT [None]
  - THROMBOCYTOPENIA [None]
